FAERS Safety Report 5496548-1 (Version None)
Quarter: 2007Q4

REPORT INFORMATION
  Report Type: 
  Country: None (occurrence: None)
  Receive Date: 20071025
  Receipt Date: 20070625
  Transmission Date: 20080405
  Serious: No
  Sender: FDA-Public Use
  Company Number: A0656612A

PATIENT
  Age: 45 Year
  Sex: Female

DRUGS (7)
  1. ADVAIR DISKUS 100/50 [Suspect]
     Indication: ASTHMA
     Route: 055
     Dates: start: 20020101
  2. NARDIL [Concomitant]
  3. ADDERALL 10 [Concomitant]
  4. LORAZEPAM [Concomitant]
  5. ORAP [Concomitant]
  6. CLONOPIN [Concomitant]
  7. PRILOSEC [Concomitant]

REACTIONS (6)
  - DYSPEPSIA [None]
  - FACIAL PAIN [None]
  - ODYNOPHAGIA [None]
  - OESOPHAGEAL CANDIDIASIS [None]
  - SINUS HEADACHE [None]
  - VAGINAL INFECTION [None]
